FAERS Safety Report 16410951 (Version 1)
Quarter: 2019Q3

REPORT INFORMATION
  Report Type: Spontaneous
  Country: US (occurrence: US)
  Receive Date: 20190609
  Receipt Date: 20190609
  Transmission Date: 20191004
  Serious: Yes (Disabling, Other)
  Sender: FDA-Public Use
  Company Number: None

PATIENT
  Age: 24 Year
  Sex: Female
  Weight: 64.8 kg

DRUGS (5)
  1. POZAC HEN [Concomitant]
  2. BUSPAR [Concomitant]
     Active Substance: BUSPIRONE HYDROCHLORIDE
  3. ABILIFY [Suspect]
     Active Substance: ARIPIPRAZOLE
     Indication: ANGER
     Dosage: ?          QUANTITY:1 TABLET(S);?
     Route: 048
     Dates: start: 20190124, end: 20190214
  4. VITAMIN D [Concomitant]
     Active Substance: VITAMIN D NOS
  5. FLUVOXAMINE [Concomitant]
     Active Substance: FLUVOXAMINE

REACTIONS (5)
  - Disease recurrence [None]
  - Cardiac flutter [None]
  - Anaemia [None]
  - Atrial fibrillation [None]
  - Presyncope [None]

NARRATIVE: CASE EVENT DATE: 20190214
